FAERS Safety Report 12230241 (Version 2)
Quarter: 2016Q2

REPORT INFORMATION
  Report Type: Spontaneous
  Country: US (occurrence: US)
  Receive Date: 20160401
  Receipt Date: 20160405
  Transmission Date: 20160815
  Serious: Yes (Other)
  Sender: FDA-Public Use
  Company Number: US-RECKITT BENCKISER HEALTHCARE INT LIMITED-RB-83815-2016

PATIENT
  Sex: Male

DRUGS (1)
  1. CLEARASIL ULTRA RAPID ACTION DAILY FACE WASH [Suspect]
     Active Substance: SALICYLIC ACID
     Indication: SKIN COSMETIC PROCEDURE
     Dosage: UNK, SINGLE
     Route: 047
     Dates: start: 20160327

REACTIONS (8)
  - Eye infection [Unknown]
  - Eye irritation [Unknown]
  - Abnormal sensation in eye [Unknown]
  - Ocular hyperaemia [Unknown]
  - Product contamination physical [Unknown]
  - Eye swelling [Unknown]
  - Eye injury [Unknown]
  - Accidental exposure to product [Unknown]

NARRATIVE: CASE EVENT DATE: 20160327
